FAERS Safety Report 6026955-X (Version None)
Quarter: 2009Q1

REPORT INFORMATION
  Report Type: 
  Country: None (occurrence: None)
  Receive Date: 20090105
  Receipt Date: 20081224
  Transmission Date: 20090719
  Serious: Yes (Other)
  Sender: FDA-Public Use
  Company Number: PHHY2008GB31929

PATIENT
  Sex: Male

DRUGS (2)
  1. CLOZARIL [Suspect]
     Indication: SCHIZOPHRENIA
     Dosage: UNK
     Route: 048
     Dates: start: 20071022, end: 20081211
  2. METRONIDAZOLE [Concomitant]

REACTIONS (4)
  - LIMB INJURY [None]
  - NEUTROPHIL COUNT DECREASED [None]
  - OSTEOMYELITIS CHRONIC [None]
  - WHITE BLOOD CELL COUNT DECREASED [None]
